FAERS Safety Report 13415121 (Version 1)
Quarter: 2017Q2

REPORT INFORMATION
  Report Type: Spontaneous
  Country: US (occurrence: US)
  Receive Date: 20170407
  Receipt Date: 20170407
  Transmission Date: 20170830
  Serious: Yes (Disabling)
  Sender: FDA-Public Use
  Company Number: None

PATIENT
  Age: 63 Year
  Sex: Female
  Weight: 70.2 kg

DRUGS (15)
  1. VITAMIN C [Concomitant]
     Active Substance: ASCORBIC ACID
  2. GABAPENTIN 300 [Suspect]
     Active Substance: GABAPENTIN
     Indication: BACK PAIN
     Dosage: ?          QUANTITY:1 TABLET(S);?
     Route: 048
     Dates: start: 20141103, end: 20141130
  3. ZOCOR [Concomitant]
     Active Substance: SIMVASTATIN
  4. ESTRADIOL. [Concomitant]
     Active Substance: ESTRADIOL
  5. SOMA [Concomitant]
     Active Substance: CARISOPRODOL
  6. TOPIRIMATE [Concomitant]
  7. TOVIAZ [Concomitant]
     Active Substance: FESOTERODINE FUMARATE
  8. BIOTIN [Concomitant]
     Active Substance: BIOTIN
  9. CELEBREX [Concomitant]
     Active Substance: CELECOXIB
  10. OXYCODONE [Concomitant]
     Active Substance: OXYCODONE
  11. FISH OIL [Concomitant]
     Active Substance: FISH OIL
  12. SYNTHROID [Concomitant]
     Active Substance: LEVOTHYROXINE SODIUM
  13. ACIPHEX [Concomitant]
     Active Substance: RABEPRAZOLE SODIUM
  14. VITAMIN D [Concomitant]
     Active Substance: CHOLECALCIFEROL
  15. VITAMIN B12 [Concomitant]
     Active Substance: CYANOCOBALAMIN

REACTIONS (1)
  - Diplopia [None]

NARRATIVE: CASE EVENT DATE: 20141103
